FAERS Safety Report 5371203-7 (Version None)
Quarter: 2007Q2

REPORT INFORMATION
  Report Type: 
  Country: None (occurrence: None)
  Receive Date: 20070615
  Receipt Date: 20070330
  Transmission Date: 20071010
  Serious: Yes (Hospitalization)
  Sender: FDA-Public Use
  Company Number: 200710815US

PATIENT
  Age: 78 Year
  Sex: Female
  Weight: 90.1 kg

DRUGS (18)
  1. LANTUS [Suspect]
     Indication: DIABETES MELLITUS NON-INSULIN-DEPENDENT
     Dosage: 40 U
     Dates: start: 20070110, end: 20070215
  2. LANTUS [Suspect]
     Dosage: 50 U HS SC
     Route: 058
     Dates: start: 20070216
  3. HUMALOG [Suspect]
     Dosage: AC
  4. ZOCOR [Concomitant]
  5. LORAZEPAM [Concomitant]
  6. HYDROCHLOROTHIAZIDE, LOSARTAN POTASSIUM (HYZAAR) [Concomitant]
  7. LEVOTHYROXINE SODIUM (LEVOXYL) [Concomitant]
  8. NORVASC [Concomitant]
  9. ALTACE [Concomitant]
  10. FOLIC ACID [Concomitant]
  11. COREG [Concomitant]
  12. LASIX [Concomitant]
  13. POTASSIUM CHLORIDE [Concomitant]
  14. ASPIRIN [Concomitant]
  15. MECLIZINE [Concomitant]
  16. AMITRIPTYLINE HCL [Concomitant]
  17. INSULIN HUMAN INJECTION, ISOPHANE, INSULIN HUMAN ZINC SUSPENSION (HUMU [Concomitant]
  18. OXYCODONE HCL [Concomitant]

REACTIONS (5)
  - ASTHENIA [None]
  - BLOOD GLUCOSE DECREASED [None]
  - BLOOD GLUCOSE INCREASED [None]
  - DIZZINESS [None]
  - DRUG INEFFECTIVE [None]
